FAERS Safety Report 23205592 (Version 1)
Quarter: 2023Q4

REPORT INFORMATION
  Report Type: Other
  Country: None (occurrence: ID)
  Receive Date: 20231120
  Receipt Date: 20231120
  Transmission Date: 20240110
  Serious: Yes (Hospitalization, Other)
  Sender: FDA-Public Use
  Company Number: ID-Appco Pharma LLC-2148474

PATIENT
  Age: 4 Month
  Sex: Male
  Weight: 7.3 kg

DRUGS (11)
  1. ACETAZOLAMIDE [Suspect]
     Active Substance: ACETAZOLAMIDE
     Indication: Antibiotic therapy
     Route: 048
     Dates: start: 20220811, end: 20220822
  2. ACETAMINOPHEN [Concomitant]
     Active Substance: ACETAMINOPHEN
     Route: 042
  3. AMPICILLIN [Suspect]
     Active Substance: AMPICILLIN
     Route: 042
     Dates: start: 20220811, end: 20220816
  4. GENTAMICIN [Suspect]
     Active Substance: GENTAMICIN
     Route: 042
     Dates: start: 20220811, end: 20220816
  5. CEFTRIAXONE [Suspect]
     Active Substance: CEFTRIAXONE\CEFTRIAXONE SODIUM
     Route: 042
     Dates: start: 20220811, end: 20220902
  6. VANCOMYCIN [Suspect]
     Active Substance: VANCOMYCIN
     Route: 042
     Dates: start: 20220811, end: 20220902
  7. METRONIDAZOLE [Suspect]
     Active Substance: METRONIDAZOLE
     Route: 042
     Dates: start: 20220811
  8. PHENOBARBITAL [Suspect]
     Active Substance: PHENOBARBITAL
     Route: 042
     Dates: start: 20220811
  9. PHENYTOIN [Suspect]
     Active Substance: PHENYTOIN
     Route: 042
     Dates: start: 20220811, end: 20220822
  10. CLONAZEPAM [Suspect]
     Active Substance: CLONAZEPAM
     Route: 048
     Dates: start: 20220819
  11. CARBAMAZEPINE [Suspect]
     Active Substance: CARBAMAZEPINE
     Route: 048
     Dates: start: 20220905

REACTIONS (1)
  - Drug eruption [Recovering/Resolving]
